FAERS Safety Report 7154487-4 (Version None)
Quarter: 2010Q4

REPORT INFORMATION
  Report Type: 
  Country: None (occurrence: None)
  Receive Date: 20101213
  Receipt Date: 20101208
  Transmission Date: 20110411
  Serious: Yes (Other)
  Sender: FDA-Public Use
  Company Number: US-BRISTOL-MYERS SQUIBB COMPANY-15430911

PATIENT
  Age: 79 Year
  Sex: Female
  Weight: 57 kg

DRUGS (9)
  1. COUMADIN [Suspect]
     Dosage: 1DF:5MG AND 2.5MG ON ALTERNATE DAYS OF WEEK
  2. METFORMIN [Concomitant]
  3. LOVAZA [Concomitant]
  4. LIPITOR [Concomitant]
  5. JANUVIA [Concomitant]
  6. METOPROLOL [Concomitant]
  7. ASPIRIN [Concomitant]
  8. LANTUS [Concomitant]
  9. RANEXA [Concomitant]

REACTIONS (4)
  - FALL [None]
  - HAEMATOMA [None]
  - INTERNATIONAL NORMALISED RATIO INCREASED [None]
  - VASCULAR BYPASS DYSFUNCTION [None]
